FAERS Safety Report 20204801 (Version 1)
Quarter: 2021Q4

REPORT INFORMATION
  Report Type: Spontaneous
  Country: AU (occurrence: AU)
  Receive Date: 20211220
  Receipt Date: 20211220
  Transmission Date: 20220303
  Serious: Yes (Other)
  Sender: FDA-Public Use
  Company Number: AU-SAMSUNG BIOEPIS-SB-2021-29053

PATIENT
  Age: 47 Year
  Sex: Male

DRUGS (6)
  1. INFLIXIMAB [Suspect]
     Active Substance: INFLIXIMAB
     Indication: Immune-mediated enterocolitis
     Dosage: AT WEEK ZERO
     Route: 065
  2. INFLIXIMAB [Suspect]
     Active Substance: INFLIXIMAB
     Dosage: AT WEEK TWO
     Route: 065
  3. INFLIXIMAB [Suspect]
     Active Substance: INFLIXIMAB
     Dosage: AT WEEK SIX
     Route: 065
  4. INFLIXIMAB [Suspect]
     Active Substance: INFLIXIMAB
     Dosage: UNKNOWN
     Route: 065
  5. METHYLPREDNISOLONE [Suspect]
     Active Substance: METHYLPREDNISOLONE
     Indication: Immune-mediated enterocolitis
     Dosage: GREATER THAN OR EQUAL TO 80 MILLIGRAM
     Route: 042
  6. NIVOLUMAB [Concomitant]
     Active Substance: NIVOLUMAB
     Indication: Metastatic malignant melanoma
     Dosage: UNKNOWN
     Route: 065

REACTIONS (5)
  - Colitis [Recovered/Resolved]
  - Cytomegalovirus colitis [Unknown]
  - Clostridium test positive [Unknown]
  - Drug ineffective for unapproved indication [Unknown]
  - Off label use [Unknown]
